FAERS Safety Report 6259012-8 (Version None)
Quarter: 2009Q3

REPORT INFORMATION
  Report Type: 
  Country: None (occurrence: None)
  Receive Date: 20090707
  Receipt Date: 20090702
  Transmission Date: 20100115
  Serious: Yes (Death)
  Sender: FDA-Public Use
  Company Number: PHHY2009MX26998

PATIENT
  Sex: Female

DRUGS (1)
  1. DIOVAN [Suspect]
     Indication: HYPERTENSION
     Dosage: 2 TABLETS (320 MG) PER DAY
     Route: 048
     Dates: start: 20070801, end: 20090616

REACTIONS (2)
  - PERITONITIS [None]
  - SUBDURAL EFFUSION [None]
